FAERS Safety Report 13346041 (Version 1)
Quarter: 2017Q1

REPORT INFORMATION
  Report Type: Spontaneous
  Country: US (occurrence: US)
  Receive Date: 20170317
  Receipt Date: 20170317
  Transmission Date: 20170428
  Serious: No
  Sender: FDA-Public Use
  Company Number: US-DEPOMED, INC.-US-2016DEP011461

PATIENT

DRUGS (2)
  1. GRALISE [Suspect]
     Active Substance: GABAPENTIN
     Indication: SCIATICA
     Dosage: 300 MG, QD
     Route: 048
     Dates: start: 20160707
  2. GRALISE [Suspect]
     Active Substance: GABAPENTIN
     Dosage: 900 MG, QD
     Route: 048
     Dates: end: 20160710

REACTIONS (3)
  - Product use issue [Recovered/Resolved]
  - Drug dose titration not performed [Unknown]
  - Pain in extremity [Recovering/Resolving]

NARRATIVE: CASE EVENT DATE: 20160707
